FAERS Safety Report 6555913-1 (Version None)
Quarter: 2010Q1

REPORT INFORMATION
  Report Type: 
  Country: None (occurrence: None)
  Receive Date: 20100128
  Receipt Date: 20100119
  Transmission Date: 20100710
  Serious: Yes (Hospitalization)
  Sender: FDA-Public Use
  Company Number: FR-SANOFI-AVENTIS-2010SA003088

PATIENT
  Age: 84 Year
  Sex: Male

DRUGS (9)
  1. LOVENOX [Suspect]
     Indication: DEEP VEIN THROMBOSIS
     Route: 058
     Dates: start: 20090717, end: 20090731
  2. AMOXICILLIN AND CLAVULANATE POTASSIUM [Suspect]
     Route: 048
     Dates: start: 20090717, end: 20090812
  3. LACTEOL [Suspect]
     Indication: DRUG USE FOR UNKNOWN INDICATION
     Route: 048
     Dates: start: 20090717, end: 20090721
  4. KARDEGIC [Concomitant]
     Route: 048
  5. IMOVANE [Concomitant]
     Route: 048
  6. SPECIAFOLDINE [Concomitant]
     Route: 048
     Dates: end: 20090814
  7. AERIUS [Concomitant]
     Route: 048
  8. COVERSYL /FRA/ [Concomitant]
     Route: 048
  9. TARDYFERON /GFR/ [Concomitant]
     Route: 048

REACTIONS (5)
  - ALANINE AMINOTRANSFERASE INCREASED [None]
  - ASPARTATE AMINOTRANSFERASE INCREASED [None]
  - BLOOD ALKALINE PHOSPHATASE INCREASED [None]
  - CHOLESTASIS [None]
  - GAMMA-GLUTAMYLTRANSFERASE INCREASED [None]
